FAERS Safety Report 22115400 (Version 2)
Quarter: 2024Q2

REPORT INFORMATION
  Report Type: Spontaneous
  Country: CN (occurrence: CN)
  Receive Date: 20230320
  Receipt Date: 20240621
  Transmission Date: 20240716
  Serious: Yes (Hospitalization)
  Sender: FDA-Public Use
  Company Number: CN-BAYER-2023A022035

PATIENT
  Age: 10 Year
  Sex: Male

DRUGS (2)
  1. LORATADINE [Suspect]
     Active Substance: LORATADINE
     Indication: Urticaria
     Route: 048
  2. LORATADINE [Suspect]
     Active Substance: LORATADINE
     Indication: Rhinitis allergic

REACTIONS (2)
  - Headache [Recovering/Resolving]
  - Vomiting [Recovering/Resolving]
